FAERS Safety Report 5929113-X (Version None)
Quarter: 2008Q4

REPORT INFORMATION
  Report Type: 
  Country: None (occurrence: None)
  Receive Date: 20081024
  Receipt Date: 20081017
  Transmission Date: 20090506
  Serious: Yes (Life-Threatening)
  Sender: FDA-Public Use
  Company Number: GB-TEVA-179108ISR

PATIENT
  Age: 42 Year
  Sex: Female

DRUGS (1)
  1. GABAPENTIN [Suspect]
     Indication: PAIN
     Dates: start: 20080904

REACTIONS (1)
  - ACUTE HEPATIC FAILURE [None]
